FAERS Safety Report 18378624 (Version 1)
Quarter: 2020Q4

REPORT INFORMATION
  Report Type: Other
  Country: JP (occurrence: JP)
  Receive Date: 20201013
  Receipt Date: 20201013
  Transmission Date: 20210114
  Serious: Yes (Hospitalization)
  Sender: FDA-Public Use
  Company Number: JP-ROCHE-2691930

PATIENT
  Age: 85 Year
  Sex: Female

DRUGS (1)
  1. ALECTINIB. [Suspect]
     Active Substance: ALECTINIB
     Indication: LUNG ADENOCARCINOMA STAGE IV
     Route: 065
     Dates: start: 201702

REACTIONS (1)
  - Autoimmune haemolytic anaemia [Recovering/Resolving]
